FAERS Safety Report 6153411-0 (Version None)
Quarter: 2009Q2

REPORT INFORMATION
  Report Type: 
  Country: None (occurrence: None)
  Receive Date: 20090409
  Receipt Date: 20090409
  Transmission Date: 20091009
  Serious: No
  Sender: FDA-Public Use
  Company Number: None

PATIENT
  Age: 41 Year
  Sex: Male
  Weight: 82 kg

DRUGS (1)
  1. FLUPHENAZINE [Suspect]
     Indication: PSYCHOTIC DISORDER
     Dosage: 5 MG ONCE IM
     Route: 030
     Dates: start: 20090210, end: 20090210

REACTIONS (1)
  - OROMANDIBULAR DYSTONIA [None]
